FAERS Safety Report 5285987-X (Version None)
Quarter: 2007Q2

REPORT INFORMATION
  Report Type: 
  Country: None (occurrence: None)
  Receive Date: 20070404
  Receipt Date: 20070322
  Transmission Date: 20071010
  Serious: Yes (Death, Hospitalization, Other)
  Sender: FDA-Public Use
  Company Number: CZ-PFIZER INC-2007010221

PATIENT
  Age: 60 Year
  Sex: Male

DRUGS (9)
  1. ATORVASTATIN CALCIUM [Suspect]
     Indication: HYPERLIPIDAEMIA
     Route: 048
     Dates: start: 20060831, end: 20070201
  2. ANOPYRIN [Concomitant]
  3. TICLOPIDINE HCL [Concomitant]
  4. VEROGALID [Concomitant]
  5. LORADUR [Concomitant]
  6. PREDUCTAL [Concomitant]
  7. PRESTARIUM [Concomitant]
  8. SIOFOR [Concomitant]
  9. ALL OTHER THERAPEUTIC PRODUCTS [Concomitant]

REACTIONS (12)
  - ACUTE HEPATIC FAILURE [None]
  - ARTERIOSCLEROSIS [None]
  - BRADYCARDIA [None]
  - CARDIAC FAILURE ACUTE [None]
  - CHOLECYSTITIS [None]
  - CORONARY ARTERY DISEASE [None]
  - DIABETES MELLITUS [None]
  - HEPATORENAL FAILURE [None]
  - OLIGURIA [None]
  - RENAL FAILURE ACUTE [None]
  - RHABDOMYOLYSIS [None]
  - SEPSIS [None]
